FAERS Safety Report 8237247-2 (Version None)
Quarter: 2012Q1

REPORT INFORMATION
  Report Type: 
  Country: None (occurrence: None)
  Receive Date: 20120327
  Receipt Date: 20120327
  Transmission Date: 20120608
  Serious: Yes (Hospitalization)
  Sender: FDA-Public Use
  Company Number: None

PATIENT
  Sex: Male
  Weight: 55.6 kg

DRUGS (4)
  1. VINCRISTINE [Concomitant]
  2. ONCASPAR [Suspect]
     Dosage: 4,200 UNITS
     Route: 042
  3. METHOTREXATE [Concomitant]
  4. PROPOFOL [Concomitant]

REACTIONS (1)
  - PANCREATITIS [None]
